FAERS Safety Report 13104628 (Version 1)
Quarter: 2017Q1

REPORT INFORMATION
  Report Type: Spontaneous
  Country: GB (occurrence: GB)
  Receive Date: 20170111
  Receipt Date: 20170111
  Transmission Date: 20170428
  Serious: Yes (Other)
  Sender: FDA-Public Use
  Company Number: GB-009507513-1701GBR002535

PATIENT
  Age: 37 Year
  Sex: Female
  Weight: 97 kg

DRUGS (1)
  1. NEXPLANON [Suspect]
     Active Substance: ETONOGESTREL
     Indication: CONTRACEPTION
     Dosage: UNK
     Route: 051
     Dates: start: 20160707, end: 20161220

REACTIONS (2)
  - Vulvovaginal pain [Recovered/Resolved with Sequelae]
  - Vaginal lesion [Recovered/Resolved with Sequelae]
